FAERS Safety Report 25800147 (Version 2)
Quarter: 2025Q3

REPORT INFORMATION
  Report Type: Spontaneous
  Country: US (occurrence: US)
  Receive Date: 20250915
  Receipt Date: 20250916
  Transmission Date: 20251021
  Serious: No
  Sender: ABBVIE
  Company Number: US-ABBVIE-6456264

PATIENT
  Age: 21 Year
  Sex: Female
  Weight: 43.544 kg

DRUGS (2)
  1. LILETTA [Suspect]
     Active Substance: LEVONORGESTREL
     Indication: Contraception
     Route: 015
     Dates: start: 20250910, end: 20250910
  2. LILETTA [Suspect]
     Active Substance: LEVONORGESTREL
     Indication: Menstrual disorder

REACTIONS (4)
  - Nausea [Recovered/Resolved]
  - Device dislocation [Recovered/Resolved]
  - Uterine spasm [Recovered/Resolved]
  - Procedural pain [Recovered/Resolved]

NARRATIVE: CASE EVENT DATE: 20250910
